FAERS Safety Report 10013460 (Version 1)
Quarter: 2014Q1

REPORT INFORMATION
  Report Type: Spontaneous
  Country: US (occurrence: US)
  Receive Date: 20140314
  Receipt Date: 20140314
  Transmission Date: 20141002
  Serious: No
  Sender: FDA-Public Use
  Company Number: US-TEVA-468156USA

PATIENT
  Age: 64 Year
  Sex: Female
  Weight: 53.57 kg

DRUGS (3)
  1. AZILECT [Suspect]
     Indication: PARKINSON^S DISEASE
     Route: 048
     Dates: start: 20140203
  2. MIRAPEX [Concomitant]
  3. METOPROLOL [Concomitant]

REACTIONS (2)
  - Somnolence [Unknown]
  - Dizziness [Unknown]
